FAERS Safety Report 15920843 (Version 1)
Quarter: 2019Q1

REPORT INFORMATION
  Report Type: Spontaneous
  Country: CZ (occurrence: CZ)
  Receive Date: 20190205
  Receipt Date: 20190205
  Transmission Date: 20190417
  Serious: Yes (Other)
  Sender: FDA-Public Use
  Company Number: CZ-MYLANLABS-2019M1009477

PATIENT
  Age: 84 Year
  Sex: Female

DRUGS (10)
  1. CLARITHROMYCIN. [Concomitant]
     Active Substance: CLARITHROMYCIN
     Indication: PRODUCT USED FOR UNKNOWN INDICATION
     Dosage: 1 G DAILY FOR 2 WEEKS
     Route: 065
  2. ESOMEPRAZOLE. [Concomitant]
     Active Substance: ESOMEPRAZOLE MAGNESIUM
     Indication: PRODUCT USED FOR UNKNOWN INDICATION
     Dosage: 80 MG, QD
     Route: 065
  3. AMOXICILLIN. [Concomitant]
     Active Substance: AMOXICILLIN
     Indication: PRODUCT USED FOR UNKNOWN INDICATION
     Dosage: 2 G, UNK
     Route: 065
  4. MELOXICAM. [Suspect]
     Active Substance: MELOXICAM
     Indication: HEADACHE
  5. NUROFEN                            /00109201/ [Suspect]
     Active Substance: IBUPROFEN
     Indication: HEADACHE
     Dosage: UNK (SEVERAL TIMES PER WEEK)
     Route: 065
  6. NUROFEN                            /00109201/ [Suspect]
     Active Substance: IBUPROFEN
     Indication: BACK PAIN
     Dosage: UNK
  7. PARACETAMOL [Suspect]
     Active Substance: ACETAMINOPHEN
     Indication: GASTRIC ULCER
     Dosage: UNK (SEVERAL TIMES PER WEEK)
  8. PARACETAMOL [Suspect]
     Active Substance: ACETAMINOPHEN
     Indication: HEADACHE
  9. MELOXICAM. [Suspect]
     Active Substance: MELOXICAM
     Indication: BACK PAIN
     Dosage: SEVERAL TIMES PER WEEK
  10. PARACETAMOL [Suspect]
     Active Substance: ACETAMINOPHEN
     Indication: BACK PAIN
     Dosage: UNK

REACTIONS (7)
  - Gastrointestinal disorder [Unknown]
  - Gastric ulcer [Recovered/Resolved]
  - Decreased appetite [Unknown]
  - Anaemia [Unknown]
  - Weight decreased [Unknown]
  - Nausea [Unknown]
  - Liver disorder [Unknown]

NARRATIVE: CASE EVENT DATE: 2017
